FAERS Safety Report 4746705-4 (Version None)
Quarter: 2005Q3

REPORT INFORMATION
  Report Type: 
  Country: None (occurrence: None)
  Receive Date: 20050816
  Receipt Date: 20050816
  Transmission Date: 20060218
  Serious: Yes (Other)
  Sender: FDA-Public Use
  Company Number: None

PATIENT
  Sex: Female
  Weight: 98.4306 kg

DRUGS (2)
  1. PAROXETINE 20 MG PO Q BEDTIME [Suspect]
     Indication: MAJOR DEPRESSION
     Dosage: 20 MG PO Q BEDTIME
     Route: 048
     Dates: start: 20050511
  2. BUPROPION 150 MG PO Q AM [Suspect]
     Indication: MAJOR DEPRESSION
     Dosage: 150 MG PO Q AM
     Route: 048
     Dates: start: 20050511

REACTIONS (2)
  - DEPRESSION [None]
  - THERAPEUTIC RESPONSE UNEXPECTED WITH DRUG SUBSTITUTION [None]
